FAERS Safety Report 5733368-4 (Version None)
Quarter: 2008Q2

REPORT INFORMATION
  Report Type: 
  Country: None (occurrence: None)
  Receive Date: 20080509
  Receipt Date: 20080501
  Transmission Date: 20081010
  Serious: Yes (Other)
  Sender: FDA-Public Use
  Company Number: CA-BAYER-200818773NA

PATIENT
  Age: 15 Year
  Sex: Female
  Weight: 68 kg

DRUGS (1)
  1. YASMIN [Suspect]
     Indication: ACNE
     Route: 048
     Dates: start: 20070901

REACTIONS (4)
  - GRAND MAL CONVULSION [None]
  - MUSCLE TWITCHING [None]
  - SOMATOFORM DISORDER [None]
  - TREMOR [None]
